FAERS Safety Report 15349908 (Version 2)
Quarter: 2018Q4

REPORT INFORMATION
  Report Type: Report from Study
  Country: IL (occurrence: IL)
  Receive Date: 20180904
  Receipt Date: 20181003
  Transmission Date: 20190204
  Serious: Yes (Other)
  Sender: FDA-Public Use
  Company Number: PHHY2018IL074802

PATIENT
  Age: 80 Year
  Sex: Female

DRUGS (3)
  1. AFINITOR [Suspect]
     Active Substance: EVEROLIMUS
     Dosage: 5 MG, QD
     Route: 048
     Dates: start: 20180715, end: 20180812
  2. AFINITOR [Suspect]
     Active Substance: EVEROLIMUS
     Dosage: 5 MG, QD
     Route: 048
     Dates: start: 20180529, end: 20180702
  3. AFINITOR [Suspect]
     Active Substance: EVEROLIMUS
     Indication: BREAST CANCER
     Dosage: 10 MG, QD
     Route: 048
     Dates: start: 20180330

REACTIONS (18)
  - Pruritus [Recovering/Resolving]
  - Eye swelling [Recovering/Resolving]
  - Heart rate increased [Recovering/Resolving]
  - Fatigue [Not Recovered/Not Resolved]
  - Stomatitis [Recovering/Resolving]
  - Facial pain [Not Recovered/Not Resolved]
  - Insomnia [Not Recovered/Not Resolved]
  - Spinal compression fracture [Recovering/Resolving]
  - Back pain [Not Recovered/Not Resolved]
  - Arthralgia [Recovering/Resolving]
  - Paraesthesia [Not Recovered/Not Resolved]
  - Hypoaesthesia [Not Recovered/Not Resolved]
  - Lip swelling [Not Recovered/Not Resolved]
  - Rash [Not Recovered/Not Resolved]
  - Restlessness [Recovered/Resolved]
  - Musculoskeletal chest pain [Not Recovered/Not Resolved]
  - Skin exfoliation [Recovering/Resolving]
  - Lumbar vertebral fracture [Recovering/Resolving]

NARRATIVE: CASE EVENT DATE: 20180501
